FAERS Safety Report 22265441 (Version 7)
Quarter: 2023Q2

REPORT INFORMATION
  Report Type: Spontaneous
  Country: US (occurrence: US)
  Receive Date: 20230428
  Receipt Date: 20230602
  Transmission Date: 20230722
  Serious: No
  Sender: FDA-Public Use
  Company Number: US-AMGEN-USASP2023072495

PATIENT
  Age: 70 Year
  Sex: Male
  Weight: 98.2 kg

DRUGS (2)
  1. NEULASTA [Suspect]
     Active Substance: PEGFILGRASTIM
     Indication: Prophylaxis
     Dosage: UNK
     Route: 065
  2. NEULASTA [Suspect]
     Active Substance: PEGFILGRASTIM
     Dosage: UNK
     Route: 065

REACTIONS (7)
  - Application site pruritus [Unknown]
  - Wrong technique in product usage process [Unknown]
  - Unintentional medical device removal [Unknown]
  - Device adhesion issue [Unknown]
  - Device issue [Unknown]
  - Product storage error [Unknown]
  - Application site pain [Unknown]

NARRATIVE: CASE EVENT DATE: 20230425
